FAERS Safety Report 20077260 (Version 1)
Quarter: 2021Q4

REPORT INFORMATION
  Report Type: Spontaneous
  Country: US (occurrence: None)
  Receive Date: 20211116
  Receipt Date: 20211116
  Transmission Date: 20220304
  Serious: No
  Sender: FDA-Public Use
  Company Number: None

PATIENT
  Age: 71 Year
  Sex: Female

DRUGS (2)
  1. DEVICE [Suspect]
     Active Substance: DEVICE
  2. MILRINONE [Suspect]
     Active Substance: MILRINONE

REACTIONS (5)
  - Drug dose omission by device [None]
  - Hypotension [None]
  - Heart rate decreased [None]
  - Peripheral coldness [None]
  - Device alarm issue [None]
